FAERS Safety Report 10746977 (Version 3)
Quarter: 2015Q4

REPORT INFORMATION
  Report Type: Spontaneous
  Country: US (occurrence: US)
  Receive Date: 20150129
  Receipt Date: 20151210
  Transmission Date: 20160304
  Serious: Yes (Other)
  Sender: FDA-Public Use
  Company Number: US-ASTRAZENECA-2015SE06999

PATIENT
  Age: 27408 Day
  Sex: Female

DRUGS (1)
  1. SYMBICORT [Suspect]
     Active Substance: BUDESONIDE\FORMOTEROL FUMARATE DIHYDRATE
     Dosage: 160/4.5, 2 PUFFS; TWO TIMES A DAY
     Route: 055
     Dates: start: 20150120

REACTIONS (6)
  - Dry eye [Unknown]
  - Gastrointestinal disorder [Unknown]
  - Lung neoplasm malignant [Unknown]
  - Malignant neoplasm of eye [Unknown]
  - Intentional product misuse [Unknown]
  - Intentional device misuse [Unknown]

NARRATIVE: CASE EVENT DATE: 20150120
